FAERS Safety Report 24719620 (Version 1)
Quarter: 2024Q4

REPORT INFORMATION
  Report Type: Spontaneous
  Country: US (occurrence: US)
  Receive Date: 20241211
  Receipt Date: 20241211
  Transmission Date: 20250115
  Serious: No
  Sender: ROCHE
  Company Number: US-ROCHE-10000148390

PATIENT
  Age: 66 Year
  Sex: Male
  Weight: 180 kg

DRUGS (2)
  1. ERIVEDGE [Suspect]
     Active Substance: VISMODEGIB
     Indication: Basal cell carcinoma
     Route: 048
     Dates: start: 20241029, end: 20241127
  2. ODOMZO [Concomitant]
     Active Substance: SONIDEGIB

REACTIONS (4)
  - Ageusia [Not Recovered/Not Resolved]
  - Swelling [Not Recovered/Not Resolved]
  - Pruritus [Not Recovered/Not Resolved]
  - Scab [Not Recovered/Not Resolved]

NARRATIVE: CASE EVENT DATE: 20241029
